FAERS Safety Report 16764625 (Version 5)
Quarter: 2020Q1

REPORT INFORMATION
  Report Type: Report from Study
  Country: JP (occurrence: JP)
  Receive Date: 20190902
  Receipt Date: 20200317
  Transmission Date: 20200409
  Serious: Yes (Hospitalization)
  Sender: FDA-Public Use
  Company Number: JP-ALEXION PHARMACEUTICALS INC.-A201912945

PATIENT

DRUGS (8)
  1. AMBENONIUM [Concomitant]
     Active Substance: AMBENONIUM
     Indication: MYASTHENIA GRAVIS
     Dosage: 30 MG, DAILY
     Route: 048
  2. SOLIRIS [Suspect]
     Active Substance: ECULIZUMAB
     Dosage: 600 MG, TWICE A WEEK AFTER THE PLASMA EXCHANGE
     Route: 042
     Dates: start: 20190927, end: 20191004
  3. SOLIRIS [Suspect]
     Active Substance: ECULIZUMAB
     Indication: MYASTHENIA GRAVIS
     Dosage: 900 MG, QW
     Route: 042
     Dates: start: 20190813, end: 20190903
  4. SOLIRIS [Suspect]
     Active Substance: ECULIZUMAB
     Dosage: 1200 MG, Q2W
     Route: 042
     Dates: start: 20190910, end: 20191022
  5. PREDNISOLONE. [Concomitant]
     Active Substance: PREDNISOLONE
     Indication: MYASTHENIA GRAVIS
     Dosage: 20 MG, QD
     Route: 048
     Dates: start: 201505
  6. VENOGLOBULIN [Concomitant]
     Active Substance: HUMAN IMMUNOGLOBULIN G
     Indication: MYASTHENIA GRAVIS
     Dosage: 5000 MG, 5 TIMES A WEEK
     Route: 042
     Dates: start: 2015
  7. TACROLIMUS. [Concomitant]
     Active Substance: TACROLIMUS
     Indication: MYASTHENIA GRAVIS
     Dosage: 5 MG, QD
     Route: 048
     Dates: start: 201507
  8. METHYLPREDNISOLONE. [Concomitant]
     Active Substance: METHYLPREDNISOLONE
     Indication: MYASTHENIA GRAVIS
     Dosage: 1000 MG, TIW
     Route: 065
     Dates: start: 2015

REACTIONS (2)
  - Erythema [Recovered/Resolved]
  - Fatigue [Recovering/Resolving]

NARRATIVE: CASE EVENT DATE: 20190813
